FAERS Safety Report 5370142-5 (Version None)
Quarter: 2007Q2

REPORT INFORMATION
  Report Type: 
  Country: None (occurrence: None)
  Receive Date: 20070613
  Receipt Date: 20070302
  Transmission Date: 20071010
  Serious: No
  Sender: FDA-Public Use
  Company Number: IND-AE-07-SAN-007

PATIENT
  Age: 62 Year
  Sex: Female

DRUGS (3)
  1. SANCTURA [Suspect]
     Indication: HYPERTONIC BLADDER
     Dosage: 20MG - BID - ORAL
     Route: 048
     Dates: start: 20070201, end: 20070301
  2. MICARDIS [Concomitant]
  3. ZETIA [Concomitant]

REACTIONS (2)
  - CYSTITIS [None]
  - HYPERTONIC BLADDER [None]
